FAERS Safety Report 5278216-4 (Version None)
Quarter: 2007Q1

REPORT INFORMATION
  Report Type: 
  Country: None (occurrence: None)
  Receive Date: 20070328
  Receipt Date: 20070315
  Transmission Date: 20070707
  Serious: Yes (Other)
  Sender: FDA-Public Use
  Company Number: PHBS2007BR04959

PATIENT
  Sex: Female
  Weight: 77 kg

DRUGS (2)
  1. TRILEPTAL [Suspect]
     Indication: HEAD DISCOMFORT
     Dosage: 0.5 TABLET/DAY
     Route: 048
  2. METFORMIN HCL [Concomitant]
     Indication: DIABETES MELLITUS
     Dosage: 1 TABLET AFTER LUNCH
     Route: 048

REACTIONS (4)
  - CRYING [None]
  - DEPRESSION [None]
  - DRUG WITHDRAWAL SYNDROME [None]
  - SELF INJURIOUS BEHAVIOUR [None]
